FAERS Safety Report 5090048-9 (Version None)
Quarter: 2006Q3

REPORT INFORMATION
  Report Type: 
  Country: None (occurrence: None)
  Receive Date: 20060828
  Receipt Date: 20060821
  Transmission Date: 20061208
  Serious: Yes (Hospitalization)
  Sender: FDA-Public Use
  Company Number: FR-AVENTIS-200612873FR

PATIENT
  Age: 28 Year
  Sex: Male

DRUGS (10)
  1. FLAGYL [Suspect]
     Indication: MENINGITIS
     Route: 048
     Dates: start: 20060307, end: 20060526
  2. LOVENOX [Suspect]
     Indication: PROPHYLAXIS
     Route: 058
     Dates: start: 20060307
  3. OFLOCET [Suspect]
     Indication: URINARY TRACT INFECTION
     Dates: start: 20060301, end: 20060301
  4. OFLOCET [Suspect]
     Dates: start: 20060307, end: 20060314
  5. OFLOCET [Suspect]
     Indication: MENINGITIS
     Dates: start: 20060301, end: 20060301
  6. OFLOCET [Suspect]
     Dates: start: 20060307, end: 20060314
  7. LIORESAL [Suspect]
     Route: 048
     Dates: start: 20060307
  8. RIVOTRIL [Suspect]
     Route: 048
     Dates: start: 20060307
  9. TIENAM [Suspect]
     Indication: MENINGITIS
     Route: 048
     Dates: start: 20060307, end: 20060403
  10. VANCOMYCIN [Suspect]
     Indication: MENINGITIS
     Route: 042
     Dates: start: 20060307, end: 20060526

REACTIONS (1)
  - NEUTROPENIA [None]
